FAERS Safety Report 5635804-0 (Version None)
Quarter: 2008Q1

REPORT INFORMATION
  Report Type: 
  Country: None (occurrence: None)
  Receive Date: 20080223
  Receipt Date: 20080214
  Transmission Date: 20080703
  Serious: Yes (Other)
  Sender: FDA-Public Use
  Company Number: US-ELI_LILLY_AND_COMPANY-US200802003256

PATIENT
  Age: 57 Year
  Sex: Female

DRUGS (2)
  1. HUMULIN N [Suspect]
     Dates: start: 20030101
  2. HYDROCHLOROTHIAZIDE [Concomitant]

REACTIONS (1)
  - UTERINE CANCER [None]
